FAERS Safety Report 5374753-2 (Version None)
Quarter: 2007Q2

REPORT INFORMATION
  Report Type: 
  Country: None (occurrence: None)
  Receive Date: 20070629
  Receipt Date: 20070620
  Transmission Date: 20071010
  Serious: Yes (Hospitalization)
  Sender: FDA-Public Use
  Company Number: FR-GENENTECH-243420

PATIENT
  Age: 60 Year
  Sex: Female

DRUGS (10)
  1. MABTHERA [Suspect]
     Indication: ANAEMIA HAEMOLYTIC AUTOIMMUNE
     Dosage: 375 MG/M2, UNK
     Route: 042
     Dates: start: 20070202
  2. MABTHERA [Suspect]
     Indication: THROMBOCYTOPENIA
  3. LUMIGAN [Concomitant]
     Indication: DRUG USE FOR UNKNOWN INDICATION
     Route: 031
  4. ACTONEL [Concomitant]
     Indication: DRUG USE FOR UNKNOWN INDICATION
     Route: 048
  5. AZOPT [Concomitant]
     Indication: DRUG USE FOR UNKNOWN INDICATION
     Route: 031
  6. IMOVANE [Concomitant]
     Indication: DRUG USE FOR UNKNOWN INDICATION
     Dosage: 7.5 MG, UNK
     Route: 048
  7. DOLIPRANE [Concomitant]
     Indication: DRUG USE FOR UNKNOWN INDICATION
     Route: 048
  8. ENDOTELON [Concomitant]
     Indication: DRUG USE FOR UNKNOWN INDICATION
  9. IDEOS [Concomitant]
     Indication: DRUG USE FOR UNKNOWN INDICATION
  10. SPECIAFOLDINE [Concomitant]
     Indication: DRUG USE FOR UNKNOWN INDICATION

REACTIONS (1)
  - HEPATITIS VIRAL [None]
